FAERS Safety Report 25047045 (Version 1)
Quarter: 2025Q1

REPORT INFORMATION
  Report Type: Report from Study
  Country: US (occurrence: US)
  Receive Date: 20250306
  Receipt Date: 20250306
  Transmission Date: 20250408
  Serious: Yes (Other)
  Sender: AMGEN
  Company Number: US-AMGEN-USASL2025042029

PATIENT
  Age: 80 Year
  Sex: Female

DRUGS (53)
  1. PROLIA [Suspect]
     Active Substance: DENOSUMAB
     Indication: Product used for unknown indication
     Dosage: 60 MILLIGRAM PER MILLILITRE, Q6MO
     Route: 058
  2. OTEZLA [Suspect]
     Active Substance: APREMILAST
     Indication: Behcet^s syndrome
     Dosage: 30 MILLIGRAM, BID FOR 30 DAYS
     Route: 065
     Dates: start: 2025
  3. ADALIMUMAB [Suspect]
     Active Substance: ADALIMUMAB
     Indication: Product used for unknown indication
     Route: 065
  4. ENBREL [Suspect]
     Active Substance: ETANERCEPT
     Indication: Product used for unknown indication
     Route: 065
  5. BENEFIBER [Concomitant]
     Active Substance: STARCH, WHEAT
     Dosage: 3 GRAM/3.5 GRAM, 1 POWDER IN PACKET, QD
     Route: 048
  6. PROBIOTICS NOS [Concomitant]
     Active Substance: PROBIOTICS NOS
     Dosage: 1 DOSAGE FORM, QD
     Route: 048
  7. NASONEX [Concomitant]
     Active Substance: MOMETASONE FUROATE
     Dosage: 50 MCG/2 SPRAY IN EACH NOSTRIL, QD PRN
     Route: 045
  8. MAGNESIUM OXIDE [Concomitant]
     Active Substance: MAGNESIUM OXIDE
     Dosage: 400 MILLIGRAM, QOD (AT BED TIME)
     Route: 048
  9. CELECOXIB [Concomitant]
     Active Substance: CELECOXIB
     Dosage: 200 MILLIGRAM, BID AS NEEDED
     Route: 048
  10. LORATADINE [Concomitant]
     Active Substance: LORATADINE
     Indication: Seasonal allergy
     Dosage: 10 MILLIGRAM, QD
     Route: 065
  11. ORENCIA [Concomitant]
     Active Substance: ABATACEPT
     Dosage: 250 MILLIGRAM, Q4WK
     Route: 040
  12. ATORVASTATIN CALCIUM [Concomitant]
     Active Substance: ATORVASTATIN CALCIUM
     Dosage: 20 MILLIGRAM, QHS
     Route: 048
  13. VITAMINS [Concomitant]
     Active Substance: VITAMINS
     Dosage: 1 TABLET, QD
     Route: 048
  14. LEVOTHYROXINE [Concomitant]
     Active Substance: LEVOTHYROXINE
     Dosage: 50 MICROGRAM, QD 5 DAYS A WEEK (IN THE MORNING) FOR 90 DAYS
     Route: 065
  15. CHERATUSSIN AC [Concomitant]
     Active Substance: CODEINE PHOSPHATE\GUAIFENESIN
     Dosage: 10MG-100MG/5ML, 5 MILLILITER, Q6H PRN
     Route: 048
  16. FLAXSEED [Concomitant]
     Active Substance: FLAX SEED
     Dosage: 1000 MILLIGRAM, QD
     Route: 065
  17. ALBUTEROL SULFATE [Concomitant]
     Active Substance: ALBUTEROL SULFATE
     Dosage: 108(90 BASE) MCG/ACT, 2 PUFF(S), Q6H PRN
     Route: 065
  18. VITAMIN D3 [Concomitant]
     Active Substance: CHOLECALCIFEROL
     Dosage: 5000 UNIT, QD
     Route: 065
  19. MEDROL [Concomitant]
     Active Substance: METHYLPREDNISOLONE
     Route: 065
     Dates: start: 2025
  20. DICLOFENAC [Concomitant]
     Active Substance: DICLOFENAC
     Route: 061
     Dates: start: 2025
  21. TYLENOL [Concomitant]
     Active Substance: ACETAMINOPHEN
     Route: 065
  22. CELESTONE [Concomitant]
     Active Substance: BETAMETHASONE
     Route: 065
  23. FAMVIR [Concomitant]
     Active Substance: FAMCICLOVIR
     Route: 065
  24. ADDERALL [Concomitant]
     Active Substance: AMPHETAMINE ASPARTATE\AMPHETAMINE SULFATE\DEXTROAMPHETAMINE SACCHARATE\DEXTROAMPHETAMINE SULFATE
     Route: 065
  25. HYDROCODONE [Concomitant]
     Active Substance: HYDROCODONE
     Route: 065
  26. OXYCODONE [Concomitant]
     Active Substance: OXYCODONE
     Route: 065
  27. GABAPENTIN [Concomitant]
     Active Substance: GABAPENTIN
     Route: 065
  28. AUGMENTIN [Concomitant]
     Active Substance: AMOXICILLIN\CLAVULANATE POTASSIUM
     Route: 065
  29. BACLOFEN [Concomitant]
     Active Substance: BACLOFEN
     Route: 065
  30. MONTELUKAST [Concomitant]
     Active Substance: MONTELUKAST
     Route: 065
  31. FIORICET [Concomitant]
     Active Substance: ACETAMINOPHEN\BUTALBITAL\CAFFEINE
     Route: 065
  32. Triptan [Concomitant]
     Route: 065
  33. METFORMIN [Concomitant]
     Active Substance: METFORMIN HYDROCHLORIDE
     Route: 065
  34. JARDIANCE [Concomitant]
     Active Substance: EMPAGLIFLOZIN
     Route: 065
  35. SAXENDA [Concomitant]
     Active Substance: LIRAGLUTIDE
     Route: 065
  36. VICTOZA [Concomitant]
     Active Substance: LIRAGLUTIDE
     Route: 065
  37. Ferretts [Concomitant]
     Route: 065
  38. VOLTAREN [Concomitant]
     Active Substance: DICLOFENAC SODIUM
     Route: 065
  39. PROBIOTICS NOS [Concomitant]
     Active Substance: PROBIOTICS NOS
     Route: 065
  40. COLCHICINE [Concomitant]
     Active Substance: COLCHICINE
     Route: 065
  41. PROPRANOLOL [Concomitant]
     Active Substance: PROPRANOLOL HYDROCHLORIDE
     Route: 065
  42. NURTEC ODT [Concomitant]
     Active Substance: RIMEGEPANT SULFATE
     Route: 065
  43. UBRELVY [Concomitant]
     Active Substance: UBROGEPANT
     Route: 065
  44. ARAVA [Concomitant]
     Active Substance: LEFLUNOMIDE
     Route: 065
  45. PLAQUENIL [Concomitant]
     Active Substance: HYDROXYCHLOROQUINE SULFATE
     Route: 065
  46. IMURAN [Concomitant]
     Active Substance: AZATHIOPRINE
     Route: 065
  47. Aza [Concomitant]
     Route: 065
  48. SULFASALAZINE [Concomitant]
     Active Substance: SULFASALAZINE
     Route: 065
  49. METHOTREXATE [Concomitant]
     Active Substance: METHOTREXATE
     Route: 065
  50. HUMIRA [Concomitant]
     Active Substance: ADALIMUMAB
     Route: 065
  51. RASUVO [Concomitant]
     Active Substance: METHOTREXATE SODIUM
     Route: 065
  52. Hymovis [Concomitant]
     Route: 065
  53. ZILRETTA [Concomitant]
     Active Substance: TRIAMCINOLONE ACETONIDE
     Route: 065

REACTIONS (40)
  - Cervical spinal stenosis [Unknown]
  - Haemolysis [Unknown]
  - Neuropathy peripheral [Unknown]
  - Transient ischaemic attack [Unknown]
  - Sarcopenia [Unknown]
  - Iron metabolism disorder [Unknown]
  - Dry skin [Unknown]
  - Erythema [Unknown]
  - Ecchymosis [Unknown]
  - Raynaud^s phenomenon [Unknown]
  - Skin lesion [Unknown]
  - Livedo reticularis [Unknown]
  - Cardiac murmur [Unknown]
  - Varicose vein [Unknown]
  - Fatigue [Unknown]
  - Sleep disorder [Unknown]
  - Rhinorrhoea [Unknown]
  - Upper-airway cough syndrome [Unknown]
  - Dry mouth [Unknown]
  - Mouth ulceration [Unknown]
  - Dysphonia [Unknown]
  - Lymphadenopathy [Unknown]
  - Dysphagia [Unknown]
  - Skin hypopigmentation [Unknown]
  - Increased tendency to bruise [Unknown]
  - Alopecia [Unknown]
  - Temperature intolerance [Unknown]
  - Dry eye [Unknown]
  - Dyspnoea exertional [Unknown]
  - Constipation [Unknown]
  - Dyspepsia [Unknown]
  - Abdominal distension [Unknown]
  - Nocturia [Unknown]
  - Anxiety [Unknown]
  - Affect lability [Unknown]
  - Leukocytosis [Unknown]
  - Blood creatine phosphokinase decreased [Unknown]
  - Red blood cell sedimentation rate abnormal [Unknown]
  - Upper respiratory tract infection [Unknown]
  - Bronchospasm [Unknown]
